FAERS Safety Report 8592913 (Version 3)
Quarter: 2013Q2

REPORT INFORMATION
  Report Type: Spontaneous
  Country: US (occurrence: US)
  Receive Date: 20120604
  Receipt Date: 20130617
  Transmission Date: 20140414
  Serious: Yes (Hospitalization)
  Sender: FDA-Public Use
  Company Number: US-ASTRAZENECA-2012SE34847

PATIENT
  Age: 44 Year
  Sex: Female
  Weight: 81.6 kg

DRUGS (13)
  1. NEXIUM [Suspect]
     Indication: GASTROOESOPHAGEAL REFLUX DISEASE
     Route: 048
     Dates: start: 2002, end: 2012
  2. NEXIUM [Suspect]
     Indication: GASTROOESOPHAGEAL REFLUX DISEASE
     Route: 048
     Dates: start: 20080109
  3. MYLANTA [Concomitant]
  4. MOBIC [Concomitant]
     Dates: start: 20031117
  5. XENICAL [Concomitant]
     Dates: start: 20040607
  6. CYCLOBENZAPRINE [Concomitant]
     Dates: start: 20040607
  7. TRAMADOL HCL [Concomitant]
     Dates: start: 20040607
  8. METANX [Concomitant]
     Dates: start: 20071008
  9. LORATADINE [Concomitant]
     Dates: start: 20071107
  10. SUCRALFATE [Concomitant]
     Dates: start: 20080109
  11. LYRICA [Concomitant]
     Dates: start: 20080407
  12. KETOROLAC [Concomitant]
     Dates: start: 20080407
  13. METHYLPREDNISOLONE [Concomitant]
     Dates: start: 20080407

REACTIONS (10)
  - Pneumonia [Unknown]
  - Osteoporosis [Unknown]
  - Multiple fractures [Unknown]
  - Musculoskeletal disorder [Unknown]
  - Ligament sprain [Unknown]
  - Back disorder [Unknown]
  - Bone pain [Unknown]
  - Arthritis [Unknown]
  - Depression [Unknown]
  - Abdominal pain upper [Unknown]
